FAERS Safety Report 6000159-9 (Version None)
Quarter: 2008Q4

REPORT INFORMATION
  Report Type: 
  Country: None (occurrence: None)
  Receive Date: 20081215
  Receipt Date: 20081211
  Transmission Date: 20090506
  Serious: No
  Sender: FDA-Public Use
  Company Number: CA-JNJFOC-20081101624

PATIENT
  Sex: Female
  Weight: 65 kg

DRUGS (15)
  1. DURAGESIC-100 [Suspect]
     Route: 062
  2. DURAGESIC-100 [Suspect]
     Route: 062
  3. DURAGESIC-100 [Suspect]
     Indication: BACK PAIN
     Route: 062
  4. SENOKOT [Concomitant]
     Route: 048
  5. GRAVOL TAB [Concomitant]
     Dosage: 10 ML IN 1000 ML OF D9%-NS 0.9%C-KCL 20 MEQ CONTINUOUS IV
     Route: 042
  6. COLACE [Concomitant]
     Route: 048
  7. LOVENOX [Concomitant]
     Route: 058
  8. FLOVENT [Concomitant]
     Indication: DRUG USE FOR UNKNOWN INDICATION
     Dosage: 3 VAPORIZATION ON SKIN BEFORE APPLYING THE  72 HOUR PATCH
  9. DILAUDID [Concomitant]
     Dosage: PRN (TAKEN REGULARLY EVERY 3 HOURS)
     Route: 058
  10. LACTULOSE [Concomitant]
     Dosage: AS NECESSARY
     Route: 048
  11. MAXERAN [Concomitant]
     Route: 042
  12. MAXERAN [Concomitant]
     Route: 042
  13. SODIUM CHLORIDE [Concomitant]
     Dosage: MULTI 12 10 ML DOSE OF 1000 ML D5% OR NACL 0.9% INFUSION
     Route: 042
  14. ZOFRAN [Concomitant]
     Route: 042
  15. ZANTAC [Concomitant]
     Route: 048

REACTIONS (4)
  - DRUG EXPOSURE DURING PREGNANCY [None]
  - DRUG INEFFECTIVE [None]
  - PRODUCT QUALITY ISSUE [None]
  - WRONG TECHNIQUE IN DRUG USAGE PROCESS [None]
